FAERS Safety Report 11629601 (Version 1)
Quarter: 2015Q4

REPORT INFORMATION
  Report Type: Spontaneous
  Country: US (occurrence: US)
  Receive Date: 20151014
  Receipt Date: 20151014
  Transmission Date: 20160304
  Serious: Yes (Hospitalization)
  Sender: FDA-Public Use
  Company Number: US-PROCTER+GAMBLE TECHNICAL CENTRES LTD-GS15006631

PATIENT
  Sex: Female

DRUGS (2)
  1. ALIGN [Suspect]
     Active Substance: BIFIDOBACTERIUM LONGUM SUBSP. INFANTIS
     Indication: DIARRHOEA
     Dosage: 1 CAPSUL, 1 /DAY
     Route: 048
  2. ALIGN [Suspect]
     Active Substance: BIFIDOBACTERIUM LONGUM SUBSP. INFANTIS
     Dosage: 1 CAPSUL, 2 /DAY
     Route: 048
     Dates: start: 20150930, end: 20150930

REACTIONS (13)
  - Sepsis [Recovered/Resolved]
  - Cystitis [Recovered/Resolved]
  - Abdominal pain lower [Unknown]
  - Hallucination [Recovered/Resolved]
  - Dysuria [Recovering/Resolving]
  - Diarrhoea [Not Recovered/Not Resolved]
  - Pyrexia [Recovered/Resolved]
  - Blood potassium decreased [Unknown]
  - Back pain [Unknown]
  - Overdose [Unknown]
  - Chromaturia [Recovered/Resolved]
  - Drug ineffective [Unknown]
  - Condition aggravated [Unknown]

NARRATIVE: CASE EVENT DATE: 20150919
